FAERS Safety Report 8161418-7 (Version None)
Quarter: 2012Q1

REPORT INFORMATION
  Report Type: 
  Country: None (occurrence: None)
  Receive Date: 20120224
  Receipt Date: 20120109
  Transmission Date: 20120608
  Serious: No
  Sender: FDA-Public Use
  Company Number: US-MYLANLABS-2012S1000818

PATIENT
  Age: 69 None
  Sex: Female

DRUGS (2)
  1. BUDESONIDE [Suspect]
     Indication: CROHN'S DISEASE
     Route: 048
     Dates: start: 20110801
  2. METOPROLOL TARTRATE [Concomitant]
     Indication: HYPERTENSION

REACTIONS (1)
  - OROPHARYNGEAL PAIN [None]
